FAERS Safety Report 10967232 (Version 2)
Quarter: 2015Q1

REPORT INFORMATION
  Report Type: Spontaneous
  Country: US (occurrence: None)
  Receive Date: 20150226
  Receipt Date: 20150226
  Transmission Date: 20150721
  Serious: No
  Sender: FDA-Public Use
  Company Number: TPA2010A02342

PATIENT
  Age: 57 Year
  Sex: Male
  Weight: 112.04 kg

DRUGS (2)
  1. ULORIC [Suspect]
     Active Substance: FEBUXOSTAT
     Indication: GOUT
     Route: 048
     Dates: start: 20090916, end: 20091012
  2. TARKA (VERAPAMIL HYDROCHLORIDE, TRANDOLAPRIL) [Concomitant]

REACTIONS (8)
  - Swelling face [None]
  - Lip swelling [None]
  - Pruritus [None]
  - Urticaria [None]
  - Dyspnoea [None]
  - Asthenia [None]
  - Gout [None]
  - Oedema peripheral [None]
